FAERS Safety Report 9102709 (Version 3)
Quarter: 2013Q2

REPORT INFORMATION
  Report Type: Report from Study
  Country: US (occurrence: US)
  Receive Date: 20130219
  Receipt Date: 20130522
  Transmission Date: 20140414
  Serious: No
  Sender: FDA-Public Use
  Company Number: US-VERTEX PHARMACEUTICALS INC.-2013-002239

PATIENT
  Age: 49 Year
  Sex: Male

DRUGS (3)
  1. VX-950 (TELAPREVIR) [Suspect]
     Indication: HEPATITIS C
     Dosage: UNK
     Route: 048
     Dates: start: 20130202, end: 20130427
  2. PEGASYS [Suspect]
     Indication: HEPATITIS C
     Dosage: UNK
     Dates: start: 20130202
  3. RIBAVIRIN [Suspect]
     Indication: HEPATITIS C
     Dosage: UNK
     Dates: start: 20130202

REACTIONS (8)
  - Memory impairment [Not Recovered/Not Resolved]
  - Influenza like illness [Not Recovered/Not Resolved]
  - Pyrexia [Not Recovered/Not Resolved]
  - Oral herpes [Not Recovered/Not Resolved]
  - Asthenia [Not Recovered/Not Resolved]
  - Rash pruritic [Not Recovered/Not Resolved]
  - Anorectal discomfort [Not Recovered/Not Resolved]
  - Nausea [Not Recovered/Not Resolved]
